FAERS Safety Report 10393575 (Version 4)
Quarter: 2014Q4

REPORT INFORMATION
  Report Type: Other
  Country: JP (occurrence: JP)
  Receive Date: 20140819
  Receipt Date: 20141008
  Transmission Date: 20150528
  Serious: Yes (Life-Threatening, Hospitalization, Other)
  Sender: FDA-Public Use
  Company Number: JP-BRISTOL-MYERS SQUIBB COMPANY-21299235

PATIENT
  Age: 32 Year
  Sex: Male

DRUGS (7)
  1. NORTRIPTYLINE HCL [Suspect]
     Active Substance: NORTRIPTYLINE HYDROCHLORIDE
     Route: 048
     Dates: start: 20130212, end: 20130212
  2. BIPERIDEN HCL [Concomitant]
     Active Substance: BIPERIDEN HYDROCHLORIDE
  3. DULOXETINE HCL [Suspect]
     Active Substance: DULOXETINE HYDROCHLORIDE
     Route: 048
     Dates: start: 20130212, end: 20130212
  4. CLOXAZOLAM [Concomitant]
     Active Substance: CLOXAZOLAM
  5. ABILIFY [Suspect]
     Active Substance: ARIPIPRAZOLE
     Dosage: SINGLE DOSE
     Route: 048
     Dates: start: 20130212, end: 20130212
  6. TRIAZOLAM. [Concomitant]
     Active Substance: TRIAZOLAM
  7. VERAPAMIL [Concomitant]
     Active Substance: VERAPAMIL HYDROCHLORIDE

REACTIONS (5)
  - Ventricular arrhythmia [Recovering/Resolving]
  - Pneumonia aspiration [Recovering/Resolving]
  - Overdose [Unknown]
  - Obstructive airways disorder [Recovering/Resolving]
  - Altered state of consciousness [Recovering/Resolving]

NARRATIVE: CASE EVENT DATE: 20130212
